FAERS Safety Report 8107800-5 (Version None)
Quarter: 2012Q1

REPORT INFORMATION
  Report Type: 
  Country: None (occurrence: None)
  Receive Date: 20120202
  Receipt Date: 20120123
  Transmission Date: 20120608
  Serious: Yes (Other)
  Sender: FDA-Public Use
  Company Number: US-ASTRAZENECA-2010SE34067

PATIENT
  Age: 55 Year
  Sex: Female
  Weight: 100.2 kg

DRUGS (7)
  1. SEROQUEL [Suspect]
     Indication: BIPOLAR DISORDER
     Route: 048
  2. PAXIL [Concomitant]
  3. PERCOCET [Concomitant]
     Indication: PAIN
     Dosage: 10/325 MG PRN
  4. XANAX [Concomitant]
  5. SEROQUEL [Suspect]
     Indication: SLEEP DISORDER
     Route: 048
  6. SEROQUEL [Suspect]
     Indication: MOOD SWINGS
     Route: 048
  7. LISINOPRIL [Concomitant]

REACTIONS (18)
  - DECREASED APPETITE [None]
  - CRYING [None]
  - OFF LABEL USE [None]
  - ILL-DEFINED DISORDER [None]
  - MENTAL DISORDER [None]
  - FEELING ABNORMAL [None]
  - VISUAL IMPAIRMENT [None]
  - WITHDRAWAL SYNDROME [None]
  - PERSONALITY CHANGE [None]
  - DEPRESSION [None]
  - MYOCARDIAL INFARCTION [None]
  - INSOMNIA [None]
  - TACHYPHRENIA [None]
  - MALAISE [None]
  - FEAR [None]
  - DRUG DOSE OMISSION [None]
  - PARANOIA [None]
  - CEREBROVASCULAR ACCIDENT [None]
